FAERS Safety Report 9198095 (Version 1)
Quarter: 2013Q1

REPORT INFORMATION
  Report Type: Spontaneous
  Country: BR (occurrence: BR)
  Receive Date: 20130329
  Receipt Date: 20130329
  Transmission Date: 20140127
  Serious: Yes (Other)
  Sender: FDA-Public Use
  Company Number: BR-ELI_LILLY_AND_COMPANY-BR201303006670

PATIENT
  Sex: Male
  Weight: 99 kg

DRUGS (13)
  1. HUMULIN NPH [Suspect]
     Dosage: 66 IU, EACH MORNING
     Route: 065
     Dates: start: 201207
  2. HUMULIN NPH [Suspect]
     Dosage: 10 IU, QD
     Route: 065
     Dates: start: 201207
  3. HUMULIN NPH [Suspect]
     Dosage: 36 IU, EACH EVENING
     Route: 065
     Dates: start: 201207
  4. HUMULIN REGULAR [Suspect]
     Dosage: UNK, PRN
     Route: 065
     Dates: start: 201207
  5. SINVASTATINA [Concomitant]
     Indication: BLOOD CHOLESTEROL
     Dosage: 40 MG, EACH EVENING
     Route: 065
  6. AMLODIPINE [Concomitant]
     Indication: VASODILATATION
     Dosage: 5 MG, BID
     Route: 065
  7. CILOSTAZOL [Concomitant]
     Indication: ERYSIPELAS
     Dosage: 100 MG, QD
     Route: 065
  8. ATENOLOL [Concomitant]
     Indication: BLOOD PRESSURE
     Dosage: 50 MG, QD
     Route: 065
  9. FUROSEMIDA                         /00032601/ [Concomitant]
     Indication: MICTURITION DISORDER
     Dosage: 40 MG, QD
     Route: 065
  10. SIMETICONA [Concomitant]
     Indication: FLATULENCE
     Dosage: 40 MG, QD
     Route: 065
  11. ALOPURINOL [Concomitant]
     Indication: BLOOD URIC ACID
     Dosage: 100 MG, QD
     Route: 065
  12. LOSARTAN POTASSIUM [Concomitant]
     Indication: BLOOD PRESSURE
     Dosage: 50 MG, QD
     Route: 065
  13. DIOSMIN W/HESPERIDIN [Concomitant]
     Indication: ERYSIPELAS
     Dosage: 1 DF, QD

REACTIONS (1)
  - Weight increased [Not Recovered/Not Resolved]
